FAERS Safety Report 13202264 (Version 3)
Quarter: 2017Q1

REPORT INFORMATION
  Report Type: Spontaneous
  Country: US (occurrence: US)
  Receive Date: 20170209
  Receipt Date: 20170301
  Transmission Date: 20170428
  Serious: No
  Sender: FDA-Public Use
  Company Number: US-PFIZER INC-2017058361

PATIENT
  Sex: Female

DRUGS (2)
  1. GABAPENTIN. [Suspect]
     Active Substance: GABAPENTIN
     Dosage: 300 MG, UNK
  2. GABAPENTIN. [Suspect]
     Active Substance: GABAPENTIN
     Dosage: 100 MG, UNK

REACTIONS (8)
  - Nightmare [Unknown]
  - Heart rate increased [Unknown]
  - Hypertension [Unknown]
  - Insomnia [Unknown]
  - Reaction to drug excipients [Unknown]
  - Fatigue [Unknown]
  - Nervous system disorder [Unknown]
  - Somnolence [Unknown]
